FAERS Safety Report 7884934-1 (Version None)
Quarter: 2011Q4

REPORT INFORMATION
  Report Type: 
  Country: None (occurrence: None)
  Receive Date: 20111102
  Receipt Date: 20111005
  Transmission Date: 20120403
  Serious: Yes (Other)
  Sender: FDA-Public Use
  Company Number: PHFR2011GB04226

PATIENT
  Sex: Female

DRUGS (6)
  1. CO-DANTHRUSATE [Concomitant]
     Indication: CONSTIPATION
     Dosage: UNK
     Route: 048
  2. CLOZARIL [Suspect]
     Indication: SCHIZOPHRENIA
     Dosage: 100 MG/DAY
     Route: 048
     Dates: start: 20010701
  3. SIMVASTATIN [Concomitant]
     Indication: BLOOD CHOLESTEROL INCREASED
     Dosage: 10 MG/DAY
     Route: 048
  4. RANITIDINE [Concomitant]
     Indication: ABDOMINAL DISCOMFORT
     Dosage: 150 MG/DAY
     Route: 048
  5. ISPAGHULA HUSK [Concomitant]
     Indication: CONSTIPATION
     Dosage: UNK, PRN
     Route: 065
  6. LACTULOSE [Concomitant]
     Indication: CONSTIPATION
     Dosage: 5 ML, QD
     Route: 048

REACTIONS (3)
  - ANAEMIA OF CHRONIC DISEASE [None]
  - MEMORY IMPAIRMENT [None]
  - HAEMOGLOBIN DECREASED [None]
